FAERS Safety Report 6772562-0 (Version None)
Quarter: 2010Q2

REPORT INFORMATION
  Report Type: 
  Country: None (occurrence: None)
  Receive Date: 20100616
  Receipt Date: 20100223
  Transmission Date: 20101027
  Serious: No
  Sender: FDA-Public Use
  Company Number: US-ASTRAZENECA-2010SE07836

PATIENT
  Age: 79 Year
  Sex: Female

DRUGS (1)
  1. PULMICORT FLEXHALER [Suspect]
     Indication: ASTHMA
     Dosage: 180 MCG, TWO PUFFS TWICE A DAY
     Route: 055
     Dates: start: 20050101

REACTIONS (2)
  - CONTUSION [None]
  - SKIN ATROPHY [None]
